FAERS Safety Report 19234513 (Version 2)
Quarter: 2021Q4

REPORT INFORMATION
  Report Type: Spontaneous
  Country: IN (occurrence: IN)
  Receive Date: 20210508
  Receipt Date: 20211016
  Transmission Date: 20220303
  Serious: Yes (Hospitalization, Other)
  Sender: FDA-Public Use
  Company Number: IN-GRUNENTHAL-2021-264882

PATIENT
  Age: 30 Year
  Sex: Male

DRUGS (7)
  1. TRAMADOL HYDROCHLORIDE [Interacting]
     Active Substance: TRAMADOL HYDROCHLORIDE
     Indication: Headache
     Dosage: 50 MILLIGRAM, 3/DAY
     Route: 065
  2. TRAMADOL HYDROCHLORIDE [Interacting]
     Active Substance: TRAMADOL HYDROCHLORIDE
     Indication: Insomnia
  3. TRAMADOL HYDROCHLORIDE [Interacting]
     Active Substance: TRAMADOL HYDROCHLORIDE
     Indication: Back pain
  4. ONDANSETRON [Interacting]
     Active Substance: ONDANSETRON
     Indication: Headache
     Dosage: 4 MILLIGRAM, 2/DAY
     Route: 065
  5. ONDANSETRON [Interacting]
     Active Substance: ONDANSETRON
     Indication: Insomnia
  6. METOCLOPRAMIDE [Interacting]
     Active Substance: METOCLOPRAMIDE
     Indication: Headache
     Dosage: UNK
     Route: 065
  7. METOCLOPRAMIDE [Interacting]
     Active Substance: METOCLOPRAMIDE
     Indication: Insomnia

REACTIONS (12)
  - Serotonin syndrome [Recovered/Resolved]
  - Rhabdomyolysis [Recovered/Resolved]
  - Acute kidney injury [Recovered/Resolved]
  - Fall [Unknown]
  - Loss of consciousness [Unknown]
  - Muscle rigidity [Unknown]
  - Mental status changes [Unknown]
  - Drug interaction [Unknown]
  - Drug interaction [Unknown]
  - Tachycardia [Unknown]
  - Disorientation [Unknown]
  - Seizure [Unknown]
